FAERS Safety Report 12988647 (Version 4)
Quarter: 2017Q1

REPORT INFORMATION
  Report Type: Spontaneous
  Country: IT (occurrence: IT)
  Receive Date: 20161130
  Receipt Date: 20170207
  Transmission Date: 20170428
  Serious: Yes (Other)
  Sender: FDA-Public Use
  Company Number: IT-TEVA-714289ACC

PATIENT
  Age: 60 Year
  Sex: Male

DRUGS (3)
  1. TICLOPIDINA [Suspect]
     Active Substance: TICLOPIDINE
     Indication: MYOCARDIAL INFARCTION
     Dosage: 250 MILLIGRAM DAILY;
     Route: 048
  2. ACETYLSALICYLIC ACID [Concomitant]
     Active Substance: ASPIRIN
     Indication: MYOCARDIAL INFARCTION
  3. CLOPIDOGREL [Interacting]
     Active Substance: CLOPIDOGREL BISULFATE
     Indication: MYOCARDIAL INFARCTION
     Dosage: 75 MILLIGRAM DAILY;
     Route: 048

REACTIONS (8)
  - Lichenoid keratosis [Unknown]
  - Rash [Recovered/Resolved]
  - Post inflammatory pigmentation change [Recovered/Resolved]
  - Lichenoid keratosis [Recovered/Resolved with Sequelae]
  - Pruritus [Recovered/Resolved]
  - Skin lesion [Recovered/Resolved]
  - Rash erythematous [Recovered/Resolved]
  - Drug interaction [Unknown]
